FAERS Safety Report 5322131-4 (Version None)
Quarter: 2007Q2

REPORT INFORMATION
  Report Type: 
  Country: None (occurrence: None)
  Receive Date: 20070511
  Receipt Date: 20070504
  Transmission Date: 20071010
  Serious: Yes (Hospitalization)
  Sender: FDA-Public Use
  Company Number: PHEH2007US06555

PATIENT
  Age: 45 Year
  Sex: Female

DRUGS (4)
  1. TEKTURNA [Suspect]
     Indication: ESSENTIAL HYPERTENSION
     Dosage: 300 MG, QD
     Route: 048
     Dates: start: 20070419, end: 20070420
  2. ZESTRIL [Suspect]
     Dosage: 20 MG, BID
     Dates: start: 20020101
  3. LOPRESSOR [Concomitant]
     Dosage: 50 MG, BID
  4. HYDROCHLOROTHIAZIDE [Concomitant]
     Dosage: 25 MG, QD

REACTIONS (12)
  - ANGIOEDEMA [None]
  - CIRCUMORAL OEDEMA [None]
  - DRUG INTERACTION [None]
  - DYSARTHRIA [None]
  - DYSPHAGIA [None]
  - DYSPNOEA [None]
  - OEDEMA [None]
  - OROPHARYNGEAL SWELLING [None]
  - PERIORBITAL OEDEMA [None]
  - SWELLING FACE [None]
  - SWOLLEN TONGUE [None]
  - TONGUE OEDEMA [None]
